FAERS Safety Report 20590170 (Version 1)
Quarter: 2022Q1

REPORT INFORMATION
  Report Type: Spontaneous
  Country: US (occurrence: US)
  Receive Date: 20220314
  Receipt Date: 20220314
  Transmission Date: 20220423
  Serious: No
  Sender: FDA-Public Use
  Company Number: US-drreddys-SPO/USA/22/0147523

PATIENT
  Age: 20 Year
  Sex: Male

DRUGS (1)
  1. ZENATANE [Suspect]
     Active Substance: ISOTRETINOIN
     Indication: Product used for unknown indication
     Dosage: RMA ISSUE DATE: 17 JUNE 2021 12:00:00 AM, 20 JULY 2021 12:00:00 AM, 20 AUGUST 2021 12:00:00 AM, 16 S

REACTIONS (1)
  - Condition aggravated [Unknown]
